FAERS Safety Report 17222245 (Version 1)
Quarter: 2020Q1

REPORT INFORMATION
  Report Type: Spontaneous
  Country: US (occurrence: US)
  Receive Date: 20191231
  Receipt Date: 20191231
  Transmission Date: 20200409
  Serious: Yes (Disabling)
  Sender: FDA-Public Use
  Company Number: None

PATIENT
  Age: 64 Year
  Sex: Female
  Weight: 99 kg

DRUGS (9)
  1. FASENRA [Suspect]
     Active Substance: BENRALIZUMAB
     Indication: ASTHMA
     Dosage: ?          OTHER FREQUENCY:EVERY FOUR WEEKS;?
     Route: 030
     Dates: start: 20190529, end: 20190925
  2. INSULIN [Concomitant]
     Active Substance: INSULIN NOS
  3. SPIRIVA [Concomitant]
     Active Substance: TIOTROPIUM BROMIDE MONOHYDRATE
  4. ATORVASTATIN [Concomitant]
     Active Substance: ATORVASTATIN
  5. LOSARTAN. [Concomitant]
     Active Substance: LOSARTAN
  6. SINGULAIR [Concomitant]
     Active Substance: MONTELUKAST SODIUM
  7. METFORMIN [Concomitant]
     Active Substance: METFORMIN HYDROCHLORIDE
  8. SYMBICORT [Concomitant]
     Active Substance: BUDESONIDE\FORMOTEROL FUMARATE DIHYDRATE
  9. ALBUTERNOL [Concomitant]

REACTIONS (8)
  - Eye pain [None]
  - Oedema peripheral [None]
  - Paraesthesia [None]
  - Hypoaesthesia [None]
  - Anosmia [None]
  - Sinus congestion [None]
  - Myalgia [None]
  - Alopecia [None]

NARRATIVE: CASE EVENT DATE: 20190703
